FAERS Safety Report 7092976-1 (Version None)
Quarter: 2010Q4

REPORT INFORMATION
  Report Type: 
  Country: None (occurrence: None)
  Receive Date: 20101110
  Receipt Date: 20101030
  Transmission Date: 20110411
  Serious: Yes (Hospitalization)
  Sender: FDA-Public Use
  Company Number: PHHY2010US74039

PATIENT

DRUGS (1)
  1. MIACALCIN [Suspect]
     Dosage: 300 UNITS
     Dates: start: 20101030

REACTIONS (1)
  - ACCIDENTAL OVERDOSE [None]
